FAERS Safety Report 18965282 (Version 1)
Quarter: 2021Q1

REPORT INFORMATION
  Report Type: Spontaneous
  Country: GB (occurrence: GB)
  Receive Date: 20210303
  Receipt Date: 20210303
  Transmission Date: 20210420
  Serious: Yes (Other)
  Sender: FDA-Public Use
  Company Number: GB-MYLANLABS-2021M1012349

PATIENT
  Age: 61 Year
  Sex: Male
  Weight: 81 kg

DRUGS (6)
  1. AMLODIPINE [Concomitant]
     Active Substance: AMLODIPINE BESYLATE
     Dosage: 1 TABLET ONCE A DAY
     Dates: start: 20201117
  2. NAPROXEN. [Concomitant]
     Active Substance: NAPROXEN
     Dosage: TAKE ONE TWICE DAILY
     Dates: start: 20210129, end: 20210212
  3. NAPROXEN. [Suspect]
     Active Substance: NAPROXEN
     Indication: PRODUCT USED FOR UNKNOWN INDICATION
     Dosage: 500 MILLIGRAM
     Dates: start: 20210202
  4. PREDNISOLONE. [Concomitant]
     Active Substance: PREDNISOLONE
     Dosage: TAKE FOUR DAILY FOR 5 DAYS
     Dates: start: 20210209, end: 20210210
  5. RAMIPRIL. [Concomitant]
     Active Substance: RAMIPRIL
     Dosage: 1 CAPSULE ONCE A DAY
     Dates: start: 20201117
  6. ROSUVASTATIN. [Concomitant]
     Active Substance: ROSUVASTATIN
     Dosage: 1 TABLET DAILY
     Dates: start: 20201117

REACTIONS (1)
  - Swollen tongue [Recovered/Resolved]

NARRATIVE: CASE EVENT DATE: 20210202
